FAERS Safety Report 24206578 (Version 1)
Quarter: 2024Q3

REPORT INFORMATION
  Report Type: Report from Study
  Country: GB (occurrence: GB)
  Receive Date: 20240813
  Receipt Date: 20240813
  Transmission Date: 20241017
  Serious: Yes (Hospitalization, Other)
  Sender: JAZZ
  Company Number: GB-JAZZ PHARMACEUTICALS-2024-GB-002926

PATIENT
  Age: 68 Year
  Sex: Male

DRUGS (1)
  1. VYXEOS [Suspect]
     Active Substance: CYTARABINE\DAUNORUBICIN
     Indication: Acute myeloid leukaemia

REACTIONS (3)
  - Acute respiratory distress syndrome [Not Recovered/Not Resolved]
  - Myocardial infarction [Not Recovered/Not Resolved]
  - Cardiac failure [Not Recovered/Not Resolved]
